FAERS Safety Report 24250268 (Version 1)
Quarter: 2024Q3

REPORT INFORMATION
  Report Type: Spontaneous
  Country: US (occurrence: None)
  Receive Date: 20240824
  Receipt Date: 20240824
  Transmission Date: 20241016
  Serious: Yes (unspecified)
  Sender: Public
  Company Number: None

PATIENT
  Age: 65 Year
  Sex: Female

DRUGS (9)
  1. OZEMPIC [Suspect]
     Active Substance: SEMAGLUTIDE
     Indication: Diabetes mellitus
     Dates: start: 20230701
  2. Statub [Concomitant]
  3. blood pressure med [Concomitant]
  4. METFORMIN [Concomitant]
  5. VITAMIN B12 [Concomitant]
     Active Substance: CYANOCOBALAMIN
  6. Vitamin D [Concomitant]
  7. Algae Oil [Concomitant]
  8. CALCIUM [Concomitant]
  9. MAGNESIUM [Concomitant]

REACTIONS (8)
  - Panic attack [None]
  - Thinking abnormal [None]
  - Suicidal ideation [None]
  - Insomnia [None]
  - Anxiety [None]
  - Tremor [None]
  - Tremor [None]
  - Personality change [None]

NARRATIVE: CASE EVENT DATE: 20240301
